FAERS Safety Report 8594862-4 (Version None)
Quarter: 2012Q3

REPORT INFORMATION
  Report Type: 
  Country: None (occurrence: None)
  Receive Date: 20120815
  Receipt Date: 20120803
  Transmission Date: 20120928
  Serious: Yes (Hospitalization)
  Sender: FDA-Public Use
  Company Number: FR-MPIJNJ-2012-05498

PATIENT

DRUGS (9)
  1. VALACICLOVIR [Concomitant]
     Indication: PROPHYLAXIS
     Dosage: 1000 MG, UNK
     Route: 048
     Dates: start: 20120608
  2. ESOMEPRAZOLE [Concomitant]
     Indication: PROPHYLAXIS
     Dosage: 20 MG, UNK
     Route: 048
     Dates: start: 20120608
  3. ATOVAQUONE [Concomitant]
     Indication: PROPHYLAXIS
     Dosage: 15000 MG, UNK
     Route: 048
     Dates: start: 20120608
  4. PHENOXYMETHYLPENICILLIN [Concomitant]
     Indication: PROPHYLAXIS
     Dosage: 200000 UNITS, UNK
     Route: 048
     Dates: start: 20120608
  5. SODIUM BICARBONATE [Concomitant]
     Indication: ACIDOSIS
     Dosage: 1500 MG, UNK
     Route: 048
     Dates: start: 20120608
  6. VELCADE [Suspect]
     Indication: MULTIPLE MYELOMA
     Dosage: 2899 UNK, UNK
     Route: 042
     Dates: start: 20120608
  7. DEXAMETHASONE [Suspect]
     Indication: MULTIPLE MYELOMA
     Dosage: 20 MG, UNK
     Route: 048
     Dates: start: 20120608
  8. ALLOPURINOL [Concomitant]
     Indication: PROPHYLAXIS
     Dosage: 300 MG, UNK
     Route: 048
     Dates: start: 20120608
  9. CYCLOPHOSPHAMIDE [Suspect]
     Indication: MULTIPLE MYELOMA
     Dosage: 1672 MG, UNK
     Route: 042
     Dates: start: 20120608

REACTIONS (1)
  - DIARRHOEA [None]
